FAERS Safety Report 8031585-4 (Version None)
Quarter: 2012Q1

REPORT INFORMATION
  Report Type: 
  Country: None (occurrence: None)
  Receive Date: 20120109
  Receipt Date: 20120103
  Transmission Date: 20120608
  Serious: Yes (Hospitalization)
  Sender: FDA-Public Use
  Company Number: FR-ABBOTT-12P-056-0889148-00

PATIENT
  Sex: Female

DRUGS (9)
  1. SERETID [Interacting]
     Indication: CHRONIC OBSTRUCTIVE PULMONARY DISEASE
     Dosage: 500/50 MICROGRAM: 1 DF, 2 IN 1 DAY
     Route: 055
     Dates: start: 20110201, end: 20110301
  2. SPIRIVA [Concomitant]
     Indication: CHRONIC OBSTRUCTIVE PULMONARY DISEASE
     Route: 055
  3. ZIAGEN [Concomitant]
     Indication: HIV INFECTION
     Route: 048
  4. EPIVIR [Concomitant]
     Indication: HIV INFECTION
     Route: 048
  5. LEVOTHYROXINE SODIUM [Concomitant]
     Indication: HYPOTHYROIDISM
     Route: 048
  6. REYATAZ [Concomitant]
     Indication: HIV INFECTION
     Route: 048
     Dates: end: 20110322
  7. LEXOMIL [Concomitant]
     Indication: ANXIETY
     Dosage: DAILY: 0.5 OF 6MG DF, 3MG 1 IN 1 DAY
     Route: 048
  8. NORVIR [Suspect]
     Indication: HIV INFECTION
     Route: 048
  9. UN-ALFA [Concomitant]
     Indication: HYPOTHYROIDISM
     Route: 048

REACTIONS (7)
  - OEDEMA PERIPHERAL [None]
  - CHRONIC OBSTRUCTIVE PULMONARY DISEASE [None]
  - BLOOD THYROID STIMULATING HORMONE INCREASED [None]
  - CUSHING'S SYNDROME [None]
  - FACE OEDEMA [None]
  - DRUG INTERACTION [None]
  - WEIGHT INCREASED [None]
